FAERS Safety Report 5843523-0 (Version None)
Quarter: 2008Q3

REPORT INFORMATION
  Report Type: 
  Country: None (occurrence: None)
  Receive Date: 20080808
  Receipt Date: 20080725
  Transmission Date: 20090109
  Serious: Yes (Other)
  Sender: FDA-Public Use
  Company Number: 2008JP003399

PATIENT
  Age: 68 Year
  Sex: Female

DRUGS (2)
  1. VESICARE [Suspect]
     Dosage: ORAL
     Route: 048
  2. DOGMATYL [Concomitant]

REACTIONS (1)
  - NO ADVERSE EVENT [None]
